FAERS Safety Report 15204491 (Version 1)
Quarter: 2018Q3

REPORT INFORMATION
  Report Type: Spontaneous
  Country: US (occurrence: US)
  Receive Date: 20180628
  Receipt Date: 20180628
  Transmission Date: 20181010
  Serious: No
  Sender: FDA-Public Use
  Company Number: None

PATIENT
  Age: 28 Year
  Sex: Female
  Weight: 76.5 kg

DRUGS (2)
  1. SUBOXONE [Suspect]
     Active Substance: BUPRENORPHINE HYDROCHLORIDE\NALOXONE HYDROCHLORIDE
     Indication: DRUG DEPENDENCE
     Dates: start: 20180611, end: 20180619
  2. SUBOXONE 8/2 MG TABLET [Concomitant]
     Dates: start: 20180611, end: 20180619

REACTIONS (4)
  - Nausea [None]
  - Product dosage form issue [None]
  - Muscle spasms [None]
  - Hyperhidrosis [None]

NARRATIVE: CASE EVENT DATE: 20180611
